FAERS Safety Report 11204831 (Version 1)
Quarter: 2015Q2

REPORT INFORMATION
  Report Type: Spontaneous
  Country: US (occurrence: None)
  Receive Date: 20150618
  Receipt Date: 20150618
  Transmission Date: 20150821
  Serious: Yes (Hospitalization)
  Sender: FDA-Public Use
  Company Number: None

PATIENT
  Age: 33 Year
  Sex: Male
  Weight: 93.9 kg

DRUGS (1)
  1. SULINDAC. [Suspect]
     Active Substance: SULINDAC
     Indication: ARTHRALGIA
     Route: 048
     Dates: start: 20120618, end: 20120724

REACTIONS (11)
  - Hypersensitivity [None]
  - Conjunctival hyperaemia [None]
  - Vomiting [None]
  - Respiration abnormal [None]
  - Pyrexia [None]
  - Oral herpes [None]
  - Rash erythematous [None]
  - Malaise [None]
  - Pain [None]
  - Chills [None]
  - Hepatic enzyme increased [None]

NARRATIVE: CASE EVENT DATE: 20120724
